FAERS Safety Report 12647379 (Version 1)
Quarter: 2016Q3

REPORT INFORMATION
  Report Type: Spontaneous
  Country: US (occurrence: None)
  Receive Date: 20160811
  Receipt Date: 20160811
  Transmission Date: 20161109
  Serious: Yes (Hospitalization)
  Sender: FDA-Public Use
  Company Number: None

PATIENT
  Age: 82 Year
  Sex: Female
  Weight: 70.31 kg

DRUGS (15)
  1. GABAPENTIN 300 MG CAPSULES AMNEAL [Suspect]
     Active Substance: GABAPENTIN
     Indication: HERPES ZOSTER
     Dosage: 1 CAPSULE
     Route: 048
     Dates: start: 20160630, end: 20160701
  2. METFORMIN [Concomitant]
     Active Substance: METFORMIN HYDROCHLORIDE
  3. ZEAXANTHIN /LUTEIN [Concomitant]
  4. ATORVASTATIN [Concomitant]
     Active Substance: ATORVASTATIN
  5. ADVIL [Concomitant]
     Active Substance: IBUPROFEN
  6. ZADITOR [Concomitant]
     Active Substance: KETOTIFEN FUMARATE
  7. VITAMIN D [Concomitant]
     Active Substance: CHOLECALCIFEROL
  8. MURO [Concomitant]
  9. SYSTANE ULTRA [Concomitant]
     Active Substance: POLYETHYLENE GLYCOL 400\PROPYLENE GLYCOL
  10. AMLODIPINE BESYLATE. [Concomitant]
     Active Substance: AMLODIPINE BESYLATE
  11. ASPIRIN. [Concomitant]
     Active Substance: ASPIRIN
  12. LEVOTHYROXINE. [Concomitant]
     Active Substance: LEVOTHYROXINE
  13. EZOPICLONE [Concomitant]
  14. ZYRTEC [Concomitant]
     Active Substance: CETIRIZINE HYDROCHLORIDE
  15. CENTRUM MULTI VITAMIN [Concomitant]

REACTIONS (5)
  - Ataxia [None]
  - Dizziness [None]
  - Foot fracture [None]
  - Fall [None]
  - Loss of control of legs [None]

NARRATIVE: CASE EVENT DATE: 20160701
